FAERS Safety Report 4676636-X (Version None)
Quarter: 2005Q2

REPORT INFORMATION
  Report Type: 
  Country: None (occurrence: None)
  Receive Date: 20050526
  Receipt Date: 20050513
  Transmission Date: 20051028
  Serious: Yes (Other)
  Sender: FDA-Public Use
  Company Number: 2005066897

PATIENT
  Sex: 0

DRUGS (5)
  1. DOXORUBICIN HYDROCHLORIDE [Suspect]
     Indication: BONE MARROW TUMOUR CELL INFILTRATION
     Dosage: 1 CC
     Dates: start: 20050301
  2. MESULID (NIMESULIDE) [Concomitant]
  3. ZANTAC [Concomitant]
  4. DUROGESIC (FENTANYL) [Concomitant]
  5. PARACETAMOL WITH CODEINE (CODEINE PHOSPHATE, PARACETAMOL) [Concomitant]

REACTIONS (1)
  - VASCULITIS [None]
